FAERS Safety Report 15699025 (Version 4)
Quarter: 2019Q1

REPORT INFORMATION
  Report Type: Spontaneous
  Country: US (occurrence: US)
  Receive Date: 20181207
  Receipt Date: 20190321
  Transmission Date: 20190417
  Serious: No
  Sender: FDA-Public Use
  Company Number: US-PFIZER INC-2018501625

PATIENT
  Age: 74 Year
  Sex: Female
  Weight: 90.72 kg

DRUGS (9)
  1. L-THYROXINE [LEVOTHYROXINE] [Concomitant]
     Indication: HYPOTHYROIDISM
     Dosage: 1 DF, 1X/DAY (1 TABLET BY MOUTH ONCE A DAY EVERY MORNING ON AN EMPTY STOMACH WITH A GLASS OF WATER)
     Route: 048
  2. ADVIL [Suspect]
     Active Substance: IBUPROFEN
     Indication: MYALGIA
     Dosage: UNK
  3. ADVIL [Suspect]
     Active Substance: IBUPROFEN
     Indication: HEADACHE
  4. PROLIA [Concomitant]
     Active Substance: DENOSUMAB
     Indication: BONE DENSITY ABNORMAL
     Dosage: UNK (INJECTION IN THE BACK OF THE ARM ONCE EVERY 6 MONTHS/I INJECTION EVERY 6 MONTHS)
     Dates: start: 201711, end: 201806
  5. ADVIL [IBUPROFEN] [Concomitant]
     Active Substance: IBUPROFEN
     Indication: PAIN
     Dosage: 200 MG, AS NEEDED (WHENEVER NEED NOT OFTEN)
  6. ADVIL [Suspect]
     Active Substance: IBUPROFEN
     Indication: PAIN
     Dosage: 200 MG, AS NEEDED
     Route: 048
  7. L-THYROXINE [LEVOTHYROXINE] [Concomitant]
     Dosage: 75 MEQ, 1X/DAY
     Dates: start: 201701
  8. VITAMIN D3 [Concomitant]
     Active Substance: CHOLECALCIFEROL
     Indication: VITAMIN D DEFICIENCY
     Dosage: 50000 IU, WEEKLY (1 SOFT CAPSULE BY MOUTH ONCE A WEEK )
     Route: 048
     Dates: start: 201701
  9. PROLIA [Concomitant]
     Active Substance: DENOSUMAB
     Indication: BONE DISORDER

REACTIONS (1)
  - Drug ineffective [Unknown]

NARRATIVE: CASE EVENT DATE: 20180301
